FAERS Safety Report 9941655 (Version 1)
Quarter: 2014Q1

REPORT INFORMATION
  Report Type: Spontaneous
  Country: US (occurrence: US)
  Receive Date: 20140303
  Receipt Date: 20140303
  Transmission Date: 20141002
  Serious: No
  Sender: FDA-Public Use
  Company Number: US-ABBVIE-13P-163-1040142-00

PATIENT
  Age: 19 Year
  Sex: Female

DRUGS (2)
  1. HUMIRA [Suspect]
     Indication: CROHN^S DISEASE
     Dates: start: 201208, end: 201301
  2. HUMIRA [Suspect]
     Dates: start: 20130110

REACTIONS (2)
  - Crohn^s disease [Not Recovered/Not Resolved]
  - Enteritis [Not Recovered/Not Resolved]
